FAERS Safety Report 10939222 (Version 2)
Quarter: 2015Q2

REPORT INFORMATION
  Report Type: Spontaneous
  Country: US (occurrence: US)
  Receive Date: 20150322
  Receipt Date: 20150525
  Transmission Date: 20150821
  Serious: No
  Sender: FDA-Public Use
  Company Number: US-JNJFOC-20131201277

PATIENT
  Age: 37 Year
  Sex: Male
  Weight: 83.92 kg

DRUGS (1)
  1. NUCYNTA ER [Suspect]
     Active Substance: TAPENTADOL HYDROCHLORIDE
     Indication: BACK PAIN
     Route: 048
     Dates: start: 20131115

REACTIONS (7)
  - Feeling abnormal [Recovered/Resolved]
  - Disturbance in attention [Recovered/Resolved]
  - Dreamy state [Recovered/Resolved]
  - Diarrhoea [Not Recovered/Not Resolved]
  - Agitation [Not Recovered/Not Resolved]
  - Headache [Not Recovered/Not Resolved]
  - Feeling abnormal [Not Recovered/Not Resolved]

NARRATIVE: CASE EVENT DATE: 2013
